FAERS Safety Report 18291542 (Version 2)
Quarter: 2020Q3

REPORT INFORMATION
  Report Type: Spontaneous
  Country: BR (occurrence: BR)
  Receive Date: 20200921
  Receipt Date: 20200924
  Transmission Date: 20201103
  Serious: Yes (Life-Threatening)
  Sender: FDA-Public Use
  Company Number: BR-NOVOPROD-754156

PATIENT
  Age: 43 Year
  Sex: Male
  Weight: 103 kg

DRUGS (1)
  1. OZEMPIC [Suspect]
     Active Substance: SEMAGLUTIDE
     Indication: WEIGHT CONTROL
     Dosage: 1 MG, QD
     Route: 065
     Dates: start: 20200909

REACTIONS (5)
  - Headache [Recovered/Resolved]
  - Prescription drug used without a prescription [Unknown]
  - Vomiting [Recovered/Resolved]
  - Off label use [Unknown]
  - Hypoglycaemic unconsciousness [Recovered/Resolved]

NARRATIVE: CASE EVENT DATE: 20200909
